FAERS Safety Report 10483779 (Version 1)
Quarter: 2014Q3

REPORT INFORMATION
  Report Type: Spontaneous
  Country: US (occurrence: None)
  Receive Date: 20140929
  Receipt Date: 20140929
  Transmission Date: 20150326
  Serious: No
  Sender: FDA-Public Use
  Company Number: None

PATIENT
  Age: 15 Year
  Sex: Male
  Weight: 50 kg

DRUGS (3)
  1. DEPAKOTE [Concomitant]
     Active Substance: DIVALPROEX SODIUM
  2. RISPERDAL [Suspect]
     Active Substance: RISPERIDONE
     Dosage: 1 PILL
     Route: 048
     Dates: start: 20140922, end: 20140923
  3. LEXAPRO [Concomitant]
     Active Substance: ESCITALOPRAM OXALATE

REACTIONS (2)
  - Musculoskeletal stiffness [None]
  - Movement disorder [None]

NARRATIVE: CASE EVENT DATE: 20140923
